FAERS Safety Report 20483591 (Version 7)
Quarter: 2022Q4

REPORT INFORMATION
  Report Type: Report from Study
  Country: LB (occurrence: LB)
  Receive Date: 20220217
  Receipt Date: 20221216
  Transmission Date: 20230113
  Serious: Yes (Hospitalization, Other)
  Sender: FDA-Public Use
  Company Number: LB-NOVARTISPH-NVSC2022LB033365

PATIENT
  Age: 62 Year
  Sex: Male
  Weight: 68 kg

DRUGS (2)
  1. ELTROMBOPAG OLAMINE [Suspect]
     Active Substance: ELTROMBOPAG OLAMINE
     Indication: Immune thrombocytopenia
     Dosage: 1 DOSAGE FORM, QD (50 MG MULTIPLY 1 TAB OD)
     Route: 048
     Dates: start: 20210628, end: 202205
  2. ELTROMBOPAG OLAMINE [Suspect]
     Active Substance: ELTROMBOPAG OLAMINE
     Dosage: 1 DOSAGE FORM, QD  (50 MG MULTIPLY 1 TAB OD)
     Route: 048
     Dates: start: 202208, end: 202210

REACTIONS (17)
  - Optic ischaemic neuropathy [Recovered/Resolved]
  - Respiratory tract infection [Recovered/Resolved]
  - Dyspnoea [Recovered/Resolved]
  - Renal failure [Not Recovered/Not Resolved]
  - Fluid retention [Recovered/Resolved]
  - Anaemia [Recovering/Resolving]
  - Hypertension [Recovered/Resolved]
  - Cataract [Unknown]
  - Thrombocytopenia [Not Recovered/Not Resolved]
  - Speech disorder [Unknown]
  - Hypotension [Unknown]
  - Chest discomfort [Unknown]
  - Malaise [Unknown]
  - Vision blurred [Unknown]
  - Fatigue [Unknown]
  - Chest pain [Unknown]
  - Product supply issue [Unknown]

NARRATIVE: CASE EVENT DATE: 20220131
